FAERS Safety Report 5074296-X (Version None)
Quarter: 2006Q3

REPORT INFORMATION
  Report Type: 
  Country: None (occurrence: None)
  Receive Date: 20060808
  Receipt Date: 20060301
  Transmission Date: 20061208
  Serious: No
  Sender: FDA-Public Use
  Company Number: US-AMGEN-KDL171253

PATIENT
  Sex: Female
  Weight: 55.8 kg

DRUGS (5)
  1. PROCRIT [Suspect]
     Indication: RENAL FAILURE CHRONIC
     Route: 058
     Dates: start: 20051028, end: 20060105
  2. PROGRAF [Concomitant]
     Route: 048
  3. CLONIDINE [Concomitant]
     Route: 048
  4. LANTUS [Concomitant]
     Route: 058
  5. NOVALOG INSULIN [Concomitant]
     Route: 058

REACTIONS (1)
  - PRURITUS GENERALISED [None]
